FAERS Safety Report 4818669-6 (Version None)
Quarter: 2005Q4

REPORT INFORMATION
  Report Type: 
  Country: None (occurrence: None)
  Receive Date: 20051102
  Receipt Date: 20050812
  Transmission Date: 20060501
  Serious: Yes (Hospitalization, Other)
  Sender: FDA-Public Use
  Company Number: CA-MERCK-0508CAN00137

PATIENT
  Age: 53 Year
  Sex: Male
  Weight: 90 kg

DRUGS (11)
  1. VIOXX [Suspect]
     Indication: OSTEOARTHRITIS
     Route: 048
     Dates: start: 20000801, end: 20040101
  2. ACETAMINOPHEN AND CODEINE PHOSPHATE [Concomitant]
     Indication: ARTHRALGIA
     Route: 065
     Dates: start: 20000101, end: 20031001
  3. ACETAMINOPHEN AND CODEINE PHOSPHATE [Concomitant]
     Indication: BACK PAIN
     Route: 065
     Dates: start: 20000101, end: 20031001
  4. ATORVASTATIN CALCIUM [Concomitant]
     Indication: BLOOD CHOLESTEROL INCREASED
     Route: 065
     Dates: start: 20010101
  5. MOMETASONE FUROATE [Concomitant]
     Indication: SNORING
     Route: 065
  6. FLUTICASONE PROPIONATE [Concomitant]
     Indication: SNORING
     Route: 065
  7. LORAZEPAM [Concomitant]
     Indication: ANXIETY
     Route: 065
  8. LORAZEPAM [Concomitant]
     Indication: INSOMNIA
     Route: 065
  9. WARFARIN [Concomitant]
     Indication: ANTICOAGULANT THERAPY
     Route: 065
     Dates: start: 20030926, end: 20031001
  10. WARFARIN [Concomitant]
     Indication: HIP ARTHROPLASTY
     Route: 065
     Dates: start: 20030926, end: 20031001
  11. ATENOLOL [Concomitant]
     Indication: HYPERTENSION
     Route: 065

REACTIONS (4)
  - ACUTE MYOCARDIAL INFARCTION [None]
  - ARTHRITIS [None]
  - CORONARY ARTERY DISEASE [None]
  - INJURY [None]
